FAERS Safety Report 8317066-9 (Version None)
Quarter: 2012Q2

REPORT INFORMATION
  Report Type: 
  Country: None (occurrence: None)
  Receive Date: 20120427
  Receipt Date: 20120419
  Transmission Date: 20120825
  Serious: Yes (Other)
  Sender: FDA-Public Use
  Company Number: US-BAYER-2011-123175

PATIENT
  Age: 17 Year
  Sex: Female
  Weight: 107.94 kg

DRUGS (9)
  1. PRILOSEC [Concomitant]
     Dosage: 20 MG, DAILY
     Dates: start: 20110222
  2. ANTIBIOTICS [Concomitant]
     Dosage: ON AND OFF FOR WHOLE LIFE
  3. VENTOLIN [Concomitant]
     Indication: DYSPNOEA
     Dosage: UNK
     Dates: start: 20100501
  4. ACETAMINOPHEN [Concomitant]
     Indication: HEADACHE
     Dosage: ON AND OFF, UNK
     Dates: start: 20100101, end: 20110101
  5. PERCOCET [Concomitant]
  6. ALBUTEROL [Concomitant]
     Dosage: 2 PUFFS 2 TIMES A DAY
     Route: 045
  7. YAZ [Suspect]
     Indication: PREMENSTRUAL SYNDROME
     Dosage: UNK
     Dates: start: 20081101, end: 20110101
  8. YASMIN [Suspect]
     Indication: PREMENSTRUAL SYNDROME
     Dosage: UNK
     Dates: start: 20081101, end: 20110101
  9. ACETAMINOPHEN [Concomitant]
     Indication: ABDOMINAL PAIN UPPER

REACTIONS (3)
  - CHOLECYSTITIS CHRONIC [None]
  - PAIN [None]
  - GALLBLADDER DISORDER [None]
